FAERS Safety Report 17049082 (Version 2)
Quarter: 2020Q2

REPORT INFORMATION
  Report Type: Spontaneous
  Country: PT (occurrence: PT)
  Receive Date: 20191119
  Receipt Date: 20200428
  Transmission Date: 20200713
  Serious: Yes (Hospitalization)
  Sender: FDA-Public Use
  Company Number: PT-MYLANLABS-2019M1110171

PATIENT
  Age: 55 Year
  Sex: Female

DRUGS (1)
  1. ALLOPURINOL. [Suspect]
     Active Substance: ALLOPURINOL
     Indication: HYPERTRIGLYCERIDAEMIA
     Dosage: UNK

REACTIONS (6)
  - Toxic epidermal necrolysis [Unknown]
  - Photophobia [Unknown]
  - Purpura [Unknown]
  - Conjunctival hyperaemia [Unknown]
  - Rash pruritic [Unknown]
  - Rhinorrhoea [Unknown]
